FAERS Safety Report 16029029 (Version 1)
Quarter: 2019Q1

REPORT INFORMATION
  Report Type: Spontaneous
  Country: GB (occurrence: GB)
  Receive Date: 20190304
  Receipt Date: 20190304
  Transmission Date: 20190418
  Serious: Yes (Hospitalization, Other)
  Sender: FDA-Public Use
  Company Number: GB-JNJFOC-20190301750

PATIENT
  Age: 46 Year
  Sex: Female
  Weight: 96 kg

DRUGS (6)
  1. CANAGLIFLOZIN [Suspect]
     Active Substance: CANAGLIFLOZIN
     Indication: TYPE 2 DIABETES MELLITUS
     Route: 048
     Dates: start: 20181120, end: 20181122
  2. OLMESARTAN [Concomitant]
     Active Substance: OLMESARTAN
     Route: 065
  3. LIRAGLUTIDE [Concomitant]
     Active Substance: LIRAGLUTIDE
     Route: 065
  4. FEMOSTON CONTI [Concomitant]
     Active Substance: DYDROGESTERONE\ESTRADIOL
     Route: 065
  5. LANSOPRAZOLE. [Concomitant]
     Active Substance: LANSOPRAZOLE
     Route: 065
  6. METFORMIN HYDROCHLORIDE. [Concomitant]
     Active Substance: METFORMIN HYDROCHLORIDE
     Route: 065

REACTIONS (1)
  - Diabetic ketoacidosis [Recovered/Resolved]

NARRATIVE: CASE EVENT DATE: 20181121
